FAERS Safety Report 8326674-0 (Version None)
Quarter: 2012Q2

REPORT INFORMATION
  Report Type: 
  Country: None (occurrence: None)
  Receive Date: 20120501
  Receipt Date: 20120423
  Transmission Date: 20120825
  Serious: Yes (Other)
  Sender: FDA-Public Use
  Company Number: GT-ABBOTT-12P-069-0914999-00

PATIENT
  Sex: Female
  Weight: 59.928 kg

DRUGS (9)
  1. DYNACIRC [Concomitant]
     Indication: HYPERTENSION
  2. METHOTREXATE [Concomitant]
  3. MICARDIS [Concomitant]
     Indication: HYPERTENSION
  4. PREDNISONE [Concomitant]
     Indication: RHEUMATOID ARTHRITIS
  5. ACYCLOVIR [Concomitant]
     Indication: HERPES VIRUS INFECTION
  6. RABEPRAZOLE SODIUM [Concomitant]
     Indication: GASTRITIS
  7. HUMIRA [Suspect]
     Indication: RHEUMATOID ARTHRITIS
     Route: 058
     Dates: start: 20100101
  8. METHOTREXATE [Interacting]
     Indication: RHEUMATOID ARTHRITIS
     Dates: start: 20080101
  9. TIZANIDINE HCL [Concomitant]
     Indication: VERTIGO

REACTIONS (3)
  - LIVER FUNCTION TEST ABNORMAL [None]
  - DRUG INTERACTION [None]
  - HEPATIC FIBROSIS [None]
